FAERS Safety Report 15983232 (Version 1)
Quarter: 2019Q1

REPORT INFORMATION
  Report Type: Spontaneous
  Country: US (occurrence: US)
  Receive Date: 20190125
  Receipt Date: 20190125
  Transmission Date: 20190418
  Serious: Yes (Hospitalization)
  Sender: FDA-Public Use
  Company Number: None

PATIENT
  Age: 60 Year
  Sex: Male

DRUGS (1)
  1. ENBREL [Suspect]
     Active Substance: ETANERCEPT
     Indication: SPONDYLOARTHROPATHY
     Route: 058
     Dates: start: 20160812, end: 20181213

REACTIONS (2)
  - Lung cancer metastatic [None]
  - Lung neoplasm malignant [None]

NARRATIVE: CASE EVENT DATE: 20181213
